FAERS Safety Report 13236621 (Version 1)
Quarter: 2017Q1

REPORT INFORMATION
  Report Type: Spontaneous
  Country: JP (occurrence: JP)
  Receive Date: 20170215
  Receipt Date: 20170215
  Transmission Date: 20170428
  Serious: Yes (Death, Life-Threatening, Other)
  Sender: FDA-Public Use
  Company Number: JP-ELI_LILLY_AND_COMPANY-JP201702003976

PATIENT
  Age: 64 Year
  Sex: Female
  Weight: 34 kg

DRUGS (2)
  1. PACLITAXEL. [Concomitant]
     Active Substance: PACLITAXEL
     Indication: GASTRIC CANCER STAGE IV
     Dosage: 80 MG/M2, OTHER
     Dates: start: 20151214, end: 20160222
  2. CYRAMZA [Suspect]
     Active Substance: RAMUCIRUMAB
     Indication: GASTRIC CANCER STAGE IV
     Dosage: 8 MG/KG, OTHER
     Route: 042
     Dates: start: 20151214, end: 20160222

REACTIONS (3)
  - Gastrointestinal perforation [Unknown]
  - Peritonitis [Unknown]
  - Malignant neoplasm progression [Fatal]

NARRATIVE: CASE EVENT DATE: 20160227
